FAERS Safety Report 9866540 (Version 3)
Quarter: 2014Q1

REPORT INFORMATION
  Report Type: Spontaneous
  Country: US (occurrence: US)
  Receive Date: 20140204
  Receipt Date: 20140304
  Transmission Date: 20141002
  Serious: Yes (Hospitalization)
  Sender: FDA-Public Use
  Company Number: US-BIOGENIDEC-2014BI009527

PATIENT
  Age: 69 Year
  Sex: Female

DRUGS (7)
  1. ERGOCALCIFEROL [Concomitant]
  2. LISINOPRIL [Concomitant]
  3. METFORMIN [Concomitant]
  4. PERCOCET [Concomitant]
  5. SYNTHROID [Concomitant]
  6. TECFIDERA [Suspect]
     Indication: MULTIPLE SCLEROSIS
     Route: 048
     Dates: start: 201308
  7. BACLOFEN [Concomitant]

REACTIONS (2)
  - Pelvic prolapse [Recovered/Resolved]
  - Benign neoplasm of bladder [Recovered/Resolved]
